FAERS Safety Report 13370868 (Version 1)
Quarter: 2017Q1

REPORT INFORMATION
  Report Type: Spontaneous
  Country: US (occurrence: US)
  Receive Date: 20170324
  Receipt Date: 20170324
  Transmission Date: 20170429
  Serious: Yes (Other)
  Sender: FDA-Public Use
  Company Number: US-THE MENTHOLATUM COMPANY-1064624

PATIENT
  Age: 68 Year
  Sex: Female
  Weight: 47.73 kg

DRUGS (1)
  1. ROHTO ICE [Suspect]
     Active Substance: HYPROMELLOSES\TETRAHYDROZOLINE HYDROCHLORIDE\ZINC SULFATE
     Route: 047
     Dates: start: 20170225, end: 20170225

REACTIONS (1)
  - Eye irritation [Recovered/Resolved]

NARRATIVE: CASE EVENT DATE: 20170225
